FAERS Safety Report 25273299 (Version 1)
Quarter: 2025Q2

REPORT INFORMATION
  Report Type: Spontaneous
  Country: US (occurrence: US)
  Receive Date: 20250506
  Receipt Date: 20250506
  Transmission Date: 20250717
  Serious: Yes (Other)
  Sender: AMNEAL
  Company Number: US-AMNEAL PHARMACEUTICALS-2024-AMRX-03683

PATIENT
  Sex: Female
  Weight: 8.753 kg

DRUGS (2)
  1. VIGABATRIN [Suspect]
     Active Substance: VIGABATRIN
     Indication: Product used for unknown indication
     Route: 048
     Dates: start: 202408
  2. VIGABATRIN [Suspect]
     Active Substance: VIGABATRIN
     Dosage: 9 MILLILITER, 2/DAY, POWDER-ORAL SUSPENSION
     Route: 048

REACTIONS (1)
  - Infantile spasms [Unknown]
